FAERS Safety Report 24374361 (Version 2)
Quarter: 2024Q4

REPORT INFORMATION
  Report Type: Spontaneous
  Country: US (occurrence: US)
  Receive Date: 20240927
  Receipt Date: 20241113
  Transmission Date: 20250115
  Serious: Yes (Hospitalization, Other)
  Sender: RADIUS PHARM
  Company Number: US-RADIUS HEALTH INC.-2024US007380

PATIENT
  Sex: Female
  Weight: 71.293 kg

DRUGS (10)
  1. TYMLOS [Suspect]
     Active Substance: ABALOPARATIDE
     Indication: Osteoporosis
     Dosage: 80 MCG, DAILY
     Route: 058
  2. TYMLOS [Suspect]
     Active Substance: ABALOPARATIDE
     Indication: Rheumatoid arthritis
  3. TYMLOS [Suspect]
     Active Substance: ABALOPARATIDE
     Indication: Duodenal ulcer
  4. TYMLOS [Suspect]
     Active Substance: ABALOPARATIDE
     Indication: Cerebral infarction
  5. TYMLOS [Suspect]
     Active Substance: ABALOPARATIDE
     Indication: Overweight
  6. TYMLOS [Suspect]
     Active Substance: ABALOPARATIDE
     Indication: Illness
  7. ORENCIA [Concomitant]
     Active Substance: ABATACEPT
     Indication: Product used for unknown indication
     Dosage: UNK
  8. HERBALS\TURMERIC [Concomitant]
     Active Substance: HERBALS\TURMERIC
     Indication: Product used for unknown indication
     Dosage: UNK
  9. CLARITIN-D NOS [Concomitant]
     Active Substance: LORATADINE\PSEUDOEPHEDRINE SULFATE
     Indication: Product used for unknown indication
     Dosage: UNK
  10. VITAMIN D NOS [Concomitant]
     Active Substance: CHOLECALCIFEROL\ERGOCALCIFEROL
     Indication: Product used for unknown indication
     Dosage: 1000 IU, UNK

REACTIONS (5)
  - Internal haemorrhage [Unknown]
  - Giant cell arteritis [Unknown]
  - Drug hypersensitivity [Unknown]
  - Faeces discoloured [Unknown]
  - Gastrointestinal inflammation [Unknown]
